FAERS Safety Report 24312173 (Version 1)
Quarter: 2024Q3

REPORT INFORMATION
  Report Type: Spontaneous
  Country: CN (occurrence: CN)
  Receive Date: 20240912
  Receipt Date: 20240912
  Transmission Date: 20241017
  Serious: Yes (Hospitalization, Other)
  Sender: INFORLIFE
  Company Number: CN-INFO-20240269

PATIENT
  Age: 58 Year
  Sex: Female

DRUGS (5)
  1. ZOLEDRONIC ACID [Suspect]
     Active Substance: ZOLEDRONIC ACID
     Indication: Osteoporosis
     Dosage: IN TOTAL
     Dates: start: 20230823, end: 20230823
  2. CEFUROXIME [Concomitant]
     Active Substance: CEFUROXIME
     Indication: Pyrexia
     Route: 048
     Dates: start: 20230825
  3. IBUPROFEN [Concomitant]
     Active Substance: IBUPROFEN
     Indication: Pyrexia
     Dosage: ORAL SUSPENSION (2 G/100 ML) 10 ML ORALLY 3 TIMES A DAY
     Route: 048
     Dates: start: 20230825
  4. METARAMINOL [Concomitant]
     Active Substance: METARAMINOL
     Indication: Haemodynamic instability
     Dosage: ()
     Dates: start: 20230826
  5. PIPERACILLIN AND TAZOBACTAM [Concomitant]
     Active Substance: PIPERACILLIN SODIUM\TAZOBACTAM SODIUM
     Indication: Anti-infective therapy
     Dosage: ()
     Dates: start: 20240826

REACTIONS (3)
  - Sepsis [Recovering/Resolving]
  - Off label use [Unknown]
  - Gastrointestinal disorder [Recovering/Resolving]

NARRATIVE: CASE EVENT DATE: 20230826
